FAERS Safety Report 5993974-9 (Version None)
Quarter: 2008Q4

REPORT INFORMATION
  Report Type: 
  Country: None (occurrence: None)
  Receive Date: 20081212
  Receipt Date: 20081203
  Transmission Date: 20090506
  Serious: Yes (Death, Hospitalization, Other)
  Sender: FDA-Public Use
  Company Number: B0549867A

PATIENT
  Age: 61 Year
  Sex: Female

DRUGS (2)
  1. AMOXICILLIN AND CLAVULANATE POTASSIUM [Suspect]
     Indication: INFECTION
  2. ROMIPLOSTIN [Suspect]
     Indication: IDIOPATHIC THROMBOCYTOPENIC PURPURA
     Dosage: 3MGK PER DAY
     Route: 058
     Dates: start: 20080925, end: 20081008

REACTIONS (3)
  - HAEMOLYSIS [None]
  - PYREXIA [None]
  - URINARY TRACT INFECTION [None]
